FAERS Safety Report 6641361-2 (Version None)
Quarter: 2010Q1

REPORT INFORMATION
  Report Type: 
  Country: None (occurrence: None)
  Receive Date: 20100318
  Receipt Date: 20090605
  Transmission Date: 20100710
  Serious: Yes (Death)
  Sender: FDA-Public Use
  Company Number: PHEH2009US18952

PATIENT
  Sex: Female

DRUGS (9)
  1. GLEEVEC [Suspect]
     Indication: GASTROINTESTINAL NEOPLASM
     Dosage: 100 MG DAILY
     Route: 048
     Dates: start: 20090401, end: 20090501
  2. NASONEX [Concomitant]
  3. ZETIA [Concomitant]
  4. SYNTHROID [Concomitant]
  5. GLIPIZIDE [Concomitant]
  6. DILTIAZEM [Concomitant]
  7. LIPITOR [Concomitant]
  8. AVAPRO [Concomitant]
  9. VITAMINS [Concomitant]

REACTIONS (1)
  - DEATH [None]
